FAERS Safety Report 9378571 (Version 1)
Quarter: 2013Q3

REPORT INFORMATION
  Report Type: Report from Study
  Country: CO (occurrence: CO)
  Receive Date: 20130702
  Receipt Date: 20130702
  Transmission Date: 20140515
  Serious: Yes (Death, Other)
  Sender: FDA-Public Use
  Company Number: CO-ROCHE-1241170

PATIENT
  Sex: 0

DRUGS (2)
  1. RIBAVIRIN [Suspect]
     Indication: HEPATITIS C
     Route: 065
  2. PEGINTERFERON ALFA-2B [Suspect]
     Indication: HEPATITIS C
     Route: 065

REACTIONS (10)
  - Cardiac arrest [Fatal]
  - Sepsis [Fatal]
  - Hepatic failure [Fatal]
  - Cardiac failure [Fatal]
  - Renal failure [Fatal]
  - Brain oedema [Fatal]
  - Neutropenia [Unknown]
  - Thrombocytopenia [Unknown]
  - Peritonitis bacterial [Unknown]
  - Infection [Unknown]
